FAERS Safety Report 4745935-5 (Version None)
Quarter: 2005Q3

REPORT INFORMATION
  Report Type: 
  Country: None (occurrence: None)
  Receive Date: 20050816
  Receipt Date: 20050712
  Transmission Date: 20060218
  Serious: Yes (Other)
  Sender: FDA-Public Use
  Company Number: GB-GLAXOSMITHKLINE-B0387429A

PATIENT
  Age: 46 Year
  Sex: Female
  Weight: 62.3 kg

DRUGS (2)
  1. MALARONE [Suspect]
     Indication: MALARIA PROPHYLAXIS
     Dosage: 1TAB PER DAY
     Dates: start: 20050505, end: 20050510
  2. NO CONCURRENT MEDICATION [Concomitant]

REACTIONS (1)
  - VASCULITIC RASH [None]
